FAERS Safety Report 5377509-X (Version None)
Quarter: 2007Q3

REPORT INFORMATION
  Report Type: 
  Country: None (occurrence: None)
  Receive Date: 20070703
  Receipt Date: 20070620
  Transmission Date: 20080115
  Serious: Yes (Death)
  Sender: FDA-Public Use
  Company Number: ES-AMGEN-UK231099

PATIENT
  Age: 71 Year
  Sex: Female

DRUGS (10)
  1. DARBEPOETIN ALFA [Suspect]
     Indication: ANAEMIA OF MALIGNANT DISEASE
     Route: 065
  2. ANTIHYPERTENSIVES [Concomitant]
     Route: 065
  3. DIGOXIN [Concomitant]
     Route: 065
  4. ACENOCOUMAROL [Concomitant]
     Route: 065
  5. MELPHALAN [Concomitant]
     Route: 048
  6. PREDNISONE TAB [Concomitant]
     Route: 048
  7. ZOLEDRONIC ACID [Concomitant]
     Route: 042
  8. BORTEZOMIB [Concomitant]
     Route: 065
  9. CALCIUM CHLORIDE [Concomitant]
     Route: 065
  10. BLOOD, WHOLE [Concomitant]
     Route: 065

REACTIONS (7)
  - BLOOD AMYLASE INCREASED [None]
  - BLOOD IMMUNOGLOBULIN G INCREASED [None]
  - CARDIAC DISORDER [None]
  - DEATH [None]
  - GENERAL PHYSICAL HEALTH DETERIORATION [None]
  - RESPIRATORY DISORDER [None]
  - URINE AMYLASE INCREASED [None]
